FAERS Safety Report 6672555-8 (Version None)
Quarter: 2010Q2

REPORT INFORMATION
  Report Type: 
  Country: None (occurrence: None)
  Receive Date: 20100408
  Receipt Date: 20100401
  Transmission Date: 20101027
  Serious: Yes (Other)
  Sender: FDA-Public Use
  Company Number: US-BRISTOL-MYERS SQUIBB COMPANY-15037948

PATIENT
  Age: 29 Year
  Sex: Female

DRUGS (6)
  1. REYATAZ [Suspect]
     Indication: HIV INFECTION
     Route: 048
  2. VITAMIN AND MINERAL PRENATAL SUPPLEMENT W/ FOLIC ACID CAP [Concomitant]
     Dosage: 1DF:1TBS
     Route: 048
  3. RITONAVIR [Concomitant]
     Indication: HIV INFECTION
     Route: 048
  4. TRUVADA [Concomitant]
     Indication: HIV INFECTION
     Dosage: 4DF:4TABS
     Route: 048
  5. BACTRIM [Concomitant]
     Indication: ANTIBIOTIC THERAPY
     Route: 048
  6. DIFLUCAN [Concomitant]
     Indication: ANTIBIOTIC THERAPY
     Route: 048

REACTIONS (3)
  - CAESAREAN SECTION [None]
  - PREGNANCY [None]
  - PREMATURE BABY [None]
